FAERS Safety Report 11688746 (Version 19)
Quarter: 2016Q4

REPORT INFORMATION
  Report Type: Report from Study
  Country: CA (occurrence: CA)
  Receive Date: 20151102
  Receipt Date: 20161223
  Transmission Date: 20170206
  Serious: Yes (Other)
  Sender: FDA-Public Use
  Company Number: CA-ROCHE-1640139

PATIENT
  Age: 57 Year
  Sex: Female
  Weight: 147 kg

DRUGS (11)
  1. NASONEX [Concomitant]
     Active Substance: MOMETASONE FUROATE
     Route: 065
  2. TYLENOL ARTHRITIS PAIN [Concomitant]
     Active Substance: ACETAMINOPHEN
     Route: 065
  3. LEFLUNOMIDE. [Concomitant]
     Active Substance: LEFLUNOMIDE
     Route: 065
  4. TRIAMZIDE [Concomitant]
     Route: 065
  5. FLEXERIL [Concomitant]
     Active Substance: CYCLOBENZAPRINE HYDROCHLORIDE
     Route: 065
  6. PARIET [Concomitant]
     Active Substance: RABEPRAZOLE SODIUM
     Route: 065
  7. ATIVAN [Concomitant]
     Active Substance: LORAZEPAM
     Route: 065
  8. CYMBALTA [Concomitant]
     Active Substance: DULOXETINE HYDROCHLORIDE
     Route: 065
  9. VOLTAREN [Concomitant]
     Active Substance: DICLOFENAC SODIUM
     Route: 065
  10. DIOVAN [Concomitant]
     Active Substance: VALSARTAN
     Route: 065
  11. ACTEMRA [Suspect]
     Active Substance: TOCILIZUMAB
     Indication: RHEUMATOID ARTHRITIS
     Route: 042
     Dates: start: 20150324

REACTIONS (22)
  - Wound infection [Unknown]
  - C-reactive protein increased [Unknown]
  - Rash [Not Recovered/Not Resolved]
  - Blood pressure diastolic abnormal [Unknown]
  - Arthropathy [Unknown]
  - Heart rate decreased [Unknown]
  - Red blood cell sedimentation rate increased [Not Recovered/Not Resolved]
  - Blood pressure increased [Unknown]
  - Eye infection [Not Recovered/Not Resolved]
  - Rheumatoid arthritis [Not Recovered/Not Resolved]
  - Blood pressure systolic increased [Unknown]
  - Back pain [Not Recovered/Not Resolved]
  - Arthralgia [Not Recovered/Not Resolved]
  - Abdominal pain [Recovered/Resolved]
  - Arthralgia [Not Recovered/Not Resolved]
  - Impaired healing [Not Recovered/Not Resolved]
  - Keratitis [Unknown]
  - Eye inflammation [Unknown]
  - Diarrhoea [Recovered/Resolved]
  - Nausea [Recovered/Resolved]
  - Poor venous access [Unknown]
  - Erythema [Unknown]

NARRATIVE: CASE EVENT DATE: 201509
